FAERS Safety Report 8314465-6 (Version None)
Quarter: 2012Q2

REPORT INFORMATION
  Report Type: 
  Country: None (occurrence: None)
  Receive Date: 20120426
  Receipt Date: 20120418
  Transmission Date: 20120825
  Serious: Yes (Death, Hospitalization)
  Sender: FDA-Public Use
  Company Number: US-ACTELION-A-NJ2011-54434

PATIENT

DRUGS (3)
  1. SILDENAFIL [Concomitant]
  2. CALCIUM CHANNEL BLOCKERS [Concomitant]
  3. TRACLEER [Suspect]
     Indication: PULMONARY ARTERIAL HYPERTENSION
     Dosage: UNK
     Route: 048
     Dates: start: 20100302

REACTIONS (5)
  - ASTHENIA [None]
  - DYSPNOEA [None]
  - DEATH [None]
  - PULMONARY FIBROSIS [None]
  - PANIC ATTACK [None]
